FAERS Safety Report 11777644 (Version 1)
Quarter: 2015Q4

REPORT INFORMATION
  Report Type: Spontaneous
  Country: US (occurrence: None)
  Receive Date: 20151124
  Receipt Date: 20151124
  Transmission Date: 20160304
  Serious: Yes (Disabling)
  Sender: FDA-Public Use
  Company Number: None

PATIENT
  Age: 69 Year
  Sex: Female
  Weight: 78.93 kg

DRUGS (4)
  1. ESTRACE [Concomitant]
     Active Substance: ESTRADIOL
  2. VITAMIN C [Concomitant]
     Active Substance: ASCORBIC ACID
  3. CIPRO [Suspect]
     Active Substance: CIPROFLOXACIN HYDROCHLORIDE
     Indication: URINARY TRACT INFECTION
     Dosage: 1
     Route: 048
     Dates: start: 20150728, end: 20150730
  4. VITAMIN B [Concomitant]
     Active Substance: VITAMIN B

REACTIONS (2)
  - Arthralgia [None]
  - Middle insomnia [None]

NARRATIVE: CASE EVENT DATE: 20150803
